FAERS Safety Report 24269379 (Version 2)
Quarter: 2024Q3

REPORT INFORMATION
  Report Type: Spontaneous
  Country: US (occurrence: US)
  Receive Date: 20240830
  Receipt Date: 20240920
  Transmission Date: 20241016
  Serious: Yes (Other)
  Sender: UROGEN PHARMA
  Company Number: US-UROGEN PHARMA LTD.-2024-UGN-000126

PATIENT

DRUGS (4)
  1. JELMYTO [Suspect]
     Active Substance: MITOMYCIN
     Indication: Transitional cell cancer of the renal pelvis and ureter
     Dosage: 4 MILLILITER, ONCE A WEEK (INSTILLATION)
     Dates: start: 2024, end: 2024
  2. JELMYTO [Suspect]
     Active Substance: MITOMYCIN
     Dosage: 4 MILLILITER, ONCE A WEEK (INSTILLATION)
     Dates: start: 2024, end: 2024
  3. JELMYTO [Suspect]
     Active Substance: MITOMYCIN
     Dosage: 4 MILLILITER, ONCE A WEEK (INSTILLATION))
     Dates: start: 2024, end: 2024
  4. JELMYTO [Suspect]
     Active Substance: MITOMYCIN
     Dosage: 4 MILLILITER, ONCE A WEEK (INSTILLATION)
     Dates: start: 20240822, end: 20240822

REACTIONS (3)
  - Nephritis [Unknown]
  - Dyspnoea [Recovered/Resolved]
  - Renal pain [Unknown]
